APPROVED DRUG PRODUCT: LEUCOVORIN CALCIUM
Active Ingredient: LEUCOVORIN CALCIUM
Strength: EQ 50MG BASE/VIAL
Dosage Form/Route: INJECTABLE;INJECTION
Application: A089353 | Product #001
Applicant: ABIC LTD
Approved: Jun 1, 1988 | RLD: No | RS: No | Type: DISCN